FAERS Safety Report 13825848 (Version 7)
Quarter: 2018Q1

REPORT INFORMATION
  Report Type: Spontaneous
  Country: US (occurrence: US)
  Receive Date: 20170802
  Receipt Date: 20180216
  Transmission Date: 20180508
  Serious: Yes (Hospitalization, Other)
  Sender: FDA-Public Use
  Company Number: US-ACTELION-A-NJ2017-157379

PATIENT
  Age: 72 Year
  Sex: Female

DRUGS (5)
  1. UPTRAVI [Suspect]
     Active Substance: SELEXIPAG
     Dosage: 1000 MCG, BID
     Route: 048
     Dates: start: 20170706
  2. UPTRAVI [Suspect]
     Active Substance: SELEXIPAG
     Dosage: 600 MCG, QPM
     Route: 048
     Dates: start: 20170721
  3. UPTRAVI [Suspect]
     Active Substance: SELEXIPAG
     Dosage: 200 MCG, BID
     Route: 048
  4. OPSUMIT [Suspect]
     Active Substance: MACITENTAN
     Indication: PULMONARY ARTERIAL HYPERTENSION
     Dosage: 10 MG, QD
     Route: 048
     Dates: start: 20170721
  5. UPTRAVI [Suspect]
     Active Substance: SELEXIPAG
     Indication: PULMONARY ARTERIAL HYPERTENSION
     Dosage: 400 MCG, QAM
     Route: 048
     Dates: start: 20170706

REACTIONS (11)
  - Therapy non-responder [Unknown]
  - Middle insomnia [Unknown]
  - Dyspnoea exertional [Unknown]
  - Fall [Unknown]
  - Transfusion [Unknown]
  - Paracentesis [Unknown]
  - Muscular weakness [Unknown]
  - Blood pressure decreased [Unknown]
  - Palpitations [Unknown]
  - Heart rate increased [Unknown]
  - Ascites [Unknown]

NARRATIVE: CASE EVENT DATE: 20170726
